FAERS Safety Report 8587474-X (Version None)
Quarter: 2012Q3

REPORT INFORMATION
  Report Type: 
  Country: None (occurrence: None)
  Receive Date: 20120810
  Receipt Date: 20120727
  Transmission Date: 20120928
  Serious: No
  Sender: FDA-Public Use
  Company Number: US-009507513-2012SP036776

PATIENT

DRUGS (3)
  1. FLUTICASONE PROPIONATE [Suspect]
     Indication: ALLERGIC SINUSITIS
     Dosage: UNK, UNKNOWN
  2. PULMICORT [Concomitant]
     Indication: CHRONIC OBSTRUCTIVE PULMONARY DISEASE
     Dosage: UNK, UNKNOWN
  3. CLARITIN-D 24 HOUR [Suspect]
     Indication: NASAL CONGESTION
     Dosage: 10 MG, ONCE
     Route: 048
     Dates: start: 20120605, end: 20120606

REACTIONS (2)
  - CONDITION AGGRAVATED [None]
  - DRUG INEFFECTIVE [None]
